FAERS Safety Report 4801064-3 (Version None)
Quarter: 2005Q4

REPORT INFORMATION
  Report Type: 
  Country: None (occurrence: None)
  Receive Date: 20051012
  Receipt Date: 20050930
  Transmission Date: 20060501
  Serious: Yes (Other)
  Sender: FDA-Public Use
  Company Number: 2005137005

PATIENT
  Age: 54 Year
  Sex: Female

DRUGS (6)
  1. LYRICA [Suspect]
     Indication: CERVICAL MYELOPATHY
     Dosage: 450 MG (2 IN 1 D), ORAL
     Route: 048
     Dates: start: 20050707
  2. MEBEVERINE HYDROCHLORIDE (MEBERINE HYDROCHLORIDE) [Suspect]
     Indication: ABDOMINAL PAIN LOWER
     Dosage: 405 MG (2 IN 1 D), ORAL
     Route: 048
     Dates: start: 20050801, end: 20050820
  3. FLUOXETINE [Concomitant]
  4. CO-DYDRAMOL (DIHYDROCODEINE BITARTRATE, PARACETAMOL) [Concomitant]
  5. PREMIQUE (ESTROGENS CONJUGATED, MEDROXYPROGESTERONE ACETATE) [Concomitant]
  6. RANITIDINE (RANTIDINE HYDROCHLROIDE) [Concomitant]

REACTIONS (4)
  - ABDOMINAL DISTENSION [None]
  - BREAST DISCOMFORT [None]
  - CONSTIPATION [None]
  - DRUG INTERACTION [None]
